FAERS Safety Report 12700868 (Version 1)
Quarter: 2016Q3

REPORT INFORMATION
  Report Type: Spontaneous
  Country: KR (occurrence: KR)
  Receive Date: 20160830
  Receipt Date: 20160830
  Transmission Date: 20161109
  Serious: Yes (Death, Hospitalization, Other)
  Sender: FDA-Public Use
  Company Number: KR-009507513-1608KOR014517

PATIENT
  Age: 60 Year
  Sex: Female

DRUGS (13)
  1. PULMICORT TURBUHALER [Concomitant]
     Active Substance: BUDESONIDE
     Indication: DYSPNOEA
     Dosage: 2 (UNIT WAS REPORTED AS ^EA^), BID
     Route: 055
     Dates: start: 20160606, end: 20160613
  2. LASIX [Concomitant]
     Active Substance: FUROSEMIDE
     Indication: OEDEMA
     Dosage: 20 MG, QD
     Route: 042
     Dates: start: 20160608, end: 20160608
  3. ARESTAL [Concomitant]
     Active Substance: LOPERAMIDE OXIDE
     Indication: CONSTIPATION
     Dosage: 1 MG, TID
     Route: 048
     Dates: start: 20160609, end: 20160609
  4. MACPERAN [Concomitant]
     Active Substance: METOCLOPRAMIDE HYDROCHLORIDE
     Indication: PROPHYLAXIS OF NAUSEA AND VOMITING
     Dosage: 5 MG, TID
     Route: 048
     Dates: start: 20160609, end: 20160610
  5. GENEXOL [Concomitant]
     Indication: LUNG NEOPLASM MALIGNANT
     Dosage: 276 MG, QD
     Route: 042
     Dates: start: 20160608, end: 20160608
  6. DEXAMETHASONE SODIUM PHOSPHATE. [Concomitant]
     Active Substance: DEXAMETHASONE SODIUM PHOSPHATE
     Indication: PROPHYLAXIS OF NAUSEA AND VOMITING
     Dosage: 5 MG, QD
     Route: 042
     Dates: start: 20160608, end: 20160608
  7. ALOXI [Concomitant]
     Active Substance: PALONOSETRON HYDROCHLORIDE
     Indication: PROPHYLAXIS OF NAUSEA AND VOMITING
     Dosage: 5 ML, QD
     Route: 042
     Dates: start: 20160608, end: 20160608
  8. ATROVENT [Concomitant]
     Active Substance: IPRATROPIUM BROMIDE
     Indication: DYSPNOEA
     Dosage: 250 MICROGRAM, TID
     Route: 055
     Dates: start: 20160606, end: 20160613
  9. VENTOLIN [Concomitant]
     Active Substance: ALBUTEROL SULFATE
     Indication: DYSPNOEA
     Dosage: 5 MG, TID
     Route: 055
     Dates: start: 20160606, end: 20160613
  10. EMEND (FOSAPREPITANT DIMEGLUMINE) [Suspect]
     Active Substance: FOSAPREPITANT DIMEGLUMINE
     Indication: PROPHYLAXIS OF NAUSEA AND VOMITING
     Dosage: 150 MG, ONCE
     Route: 042
     Dates: start: 20160608, end: 20160608
  11. DEXAMETHASONE SODIUM PHOSPHATE. [Concomitant]
     Active Substance: DEXAMETHASONE SODIUM PHOSPHATE
     Indication: DYSPNOEA
     Dosage: 5 MG, QID
     Route: 042
     Dates: start: 20160606, end: 20160608
  12. CISPLATIN. [Concomitant]
     Active Substance: CISPLATIN
     Indication: LUNG NEOPLASM MALIGNANT
     Dosage: 118 MG, QD
     Route: 042
     Dates: start: 20160608, end: 20160608
  13. MUCOMYST [Concomitant]
     Active Substance: ACETYLCYSTEINE
     Indication: DYSPNOEA
     Dosage: 4 ML, TID
     Route: 055
     Dates: start: 20160606, end: 20160613

REACTIONS (2)
  - Depressed level of consciousness [Unknown]
  - Dyspnoea [Fatal]

NARRATIVE: CASE EVENT DATE: 20160612
